FAERS Safety Report 13599553 (Version 1)
Quarter: 2017Q2

REPORT INFORMATION
  Report Type: Spontaneous
  Country: US (occurrence: US)
  Receive Date: 20170531
  Receipt Date: 20170531
  Transmission Date: 20170830
  Serious: No
  Sender: FDA-Public Use
  Company Number: US-ASTRAZENECA-2017SE55909

PATIENT
  Sex: Male

DRUGS (3)
  1. CASODEX [Suspect]
     Active Substance: BICALUTAMIDE
     Indication: PROSTATE CANCER
     Route: 048
     Dates: start: 2009, end: 2013
  2. LUPRON [Concomitant]
     Active Substance: LEUPROLIDE ACETATE
     Indication: PROSTATE CANCER
     Route: 065
     Dates: end: 2013
  3. NILUTAMIDE. [Suspect]
     Active Substance: NILUTAMIDE
     Route: 065

REACTIONS (3)
  - Malaise [Unknown]
  - Prostatic specific antigen increased [Not Recovered/Not Resolved]
  - Weight decreased [Unknown]
